FAERS Safety Report 23049719 (Version 1)
Quarter: 2023Q4

REPORT INFORMATION
  Report Type: Spontaneous
  Country: US (occurrence: US)
  Receive Date: 20231010
  Receipt Date: 20231010
  Transmission Date: 20240110
  Serious: Yes (Death, Other)
  Sender: FDA-Public Use
  Company Number: US-BRISTOL-MYERS SQUIBB COMPANY-2023-141457

PATIENT
  Age: 60 Year
  Sex: Female

DRUGS (12)
  1. AZACITIDINE [Suspect]
     Active Substance: AZACITIDINE
     Indication: Chronic myelomonocytic leukaemia
  2. AZACITIDINE [Suspect]
     Active Substance: AZACITIDINE
     Indication: Myelodysplastic syndrome
  3. AZACITIDINE [Suspect]
     Active Substance: AZACITIDINE
     Indication: Haemophagocytic lymphohistiocytosis
  4. DEXAMETHASONE [Suspect]
     Active Substance: DEXAMETHASONE
     Indication: Chronic myelomonocytic leukaemia
  5. DEXAMETHASONE [Suspect]
     Active Substance: DEXAMETHASONE
     Indication: Myelodysplastic syndrome
  6. DEXAMETHASONE [Suspect]
     Active Substance: DEXAMETHASONE
     Indication: Haemophagocytic lymphohistiocytosis
  7. ETOPOSIDE [Suspect]
     Active Substance: ETOPOSIDE
     Indication: Chronic myelomonocytic leukaemia
  8. ETOPOSIDE [Suspect]
     Active Substance: ETOPOSIDE
     Indication: Myelodysplastic syndrome
  9. ETOPOSIDE [Suspect]
     Active Substance: ETOPOSIDE
     Indication: Haemophagocytic lymphohistiocytosis
  10. TOCILIZUMAB [Concomitant]
     Active Substance: TOCILIZUMAB
     Indication: Chronic myelomonocytic leukaemia
     Dosage: AS NEEDED
  11. TOCILIZUMAB [Concomitant]
     Active Substance: TOCILIZUMAB
     Indication: Myelodysplastic syndrome
  12. TOCILIZUMAB [Concomitant]
     Active Substance: TOCILIZUMAB
     Indication: Haemophagocytic lymphohistiocytosis

REACTIONS (1)
  - Opportunistic infection [Fatal]
